FAERS Safety Report 11409997 (Version 1)
Quarter: 2015Q3

REPORT INFORMATION
  Report Type: Spontaneous
  Country: US (occurrence: None)
  Receive Date: 20150813
  Receipt Date: 20150813
  Transmission Date: 20151125
  Serious: Yes (Other)
  Sender: FDA-Public Use
  Company Number: M2014-012J

PATIENT
  Age: 26 Year
  Sex: Female
  Weight: 72.58 kg

DRUGS (9)
  1. BEYOZ [Concomitant]
  2. GENERESS FE [Concomitant]
     Active Substance: ETHINYL ESTRADIOL\FERROUS FUMARATE\NORETHINDRONE
  3. SINGULAIR [Concomitant]
     Active Substance: MONTELUKAST SODIUM
  4. LINZESS [Concomitant]
     Active Substance: LINACLOTIDE
  5. ZAFRAN [Concomitant]
  6. IMMATREN [Concomitant]
  7. METFORMIN [Concomitant]
     Active Substance: METFORMIN HYDROCHLORIDE
  8. VARIOUS, GREER LABS [Suspect]
     Active Substance: UNSPECIFIED INGREDIENT
     Indication: HYPERSENSITIVITY
     Dosage: UNKNOWN, ONCE, SCRATCH
     Dates: start: 20140814
  9. POSITIVE SKIN TEST CONTROL - HISTAMINE [Suspect]
     Active Substance: HISTAMINE
     Indication: HYPERSENSITIVITY
     Dosage: SCRATCH
     Dates: start: 20140814

REACTIONS (3)
  - Rash [None]
  - Throat tightness [None]
  - Rhinorrhoea [None]

NARRATIVE: CASE EVENT DATE: 20140814
